FAERS Safety Report 7586379-0 (Version None)
Quarter: 2011Q3

REPORT INFORMATION
  Report Type: 
  Country: None (occurrence: None)
  Receive Date: 20110701
  Receipt Date: 20110610
  Transmission Date: 20111222
  Serious: Yes (Hospitalization)
  Sender: FDA-Public Use
  Company Number: A0875647A

PATIENT
  Age: 58 Year
  Sex: Female
  Weight: 66.4 kg

DRUGS (3)
  1. AVANDIA [Suspect]
     Dosage: 4MG TWICE PER DAY
     Route: 048
     Dates: start: 19990101, end: 20070101
  2. RANITIDINE [Concomitant]
  3. LIPITOR [Concomitant]

REACTIONS (3)
  - MYOCARDIAL INFARCTION [None]
  - CEREBROVASCULAR ACCIDENT [None]
  - CORONARY ARTERY DISEASE [None]
